FAERS Safety Report 7705550-8 (Version None)
Quarter: 2011Q3

REPORT INFORMATION
  Report Type: 
  Country: None (occurrence: None)
  Receive Date: 20110824
  Receipt Date: 20110816
  Transmission Date: 20111222
  Serious: Yes (Other)
  Sender: FDA-Public Use
  Company Number: GB-ABBOTT-11P-167-0838839-00

PATIENT
  Age: 8 Year
  Sex: Female
  Weight: 17 kg

DRUGS (4)
  1. VALPROATE SODIUM [Suspect]
     Indication: MYOCLONIC EPILEPSY
     Dosage: 100 MG BD
  2. VALPROATE SODIUM [Suspect]
     Indication: GRAND MAL CONVULSION
     Dosage: 200 MG BD
  3. VIGABATRIN [Concomitant]
     Indication: MYOCLONIC EPILEPSY
  4. CLONAZEPAM [Concomitant]
     Indication: MYOCLONIC EPILEPSY

REACTIONS (2)
  - FRACTURE [None]
  - FANCONI SYNDROME [None]
